FAERS Safety Report 13084125 (Version 1)
Quarter: 2017Q1

REPORT INFORMATION
  Report Type: Spontaneous
  Country: CH (occurrence: CH)
  Receive Date: 20170104
  Receipt Date: 20170104
  Transmission Date: 20170428
  Serious: Yes (Other)
  Sender: FDA-Public Use
  Company Number: CH-ESPERO PHARMACEUTICALS-ESP201612-000058

PATIENT
  Age: 72 Year
  Sex: Male

DRUGS (5)
  1. ASPIRIN. [Concomitant]
     Active Substance: ASPIRIN
  2. NITROGLYCERIN. [Suspect]
     Active Substance: NITROGLYCERIN
     Route: 022
  3. ATENOLOL. [Concomitant]
     Active Substance: ATENOLOL
  4. PRAVASTATIN. [Concomitant]
     Active Substance: PRAVASTATIN
  5. LISINOPRIL. [Concomitant]
     Active Substance: LISINOPRIL

REACTIONS (1)
  - Prinzmetal angina [Unknown]
